FAERS Safety Report 12458124 (Version 1)
Quarter: 2016Q2

REPORT INFORMATION
  Report Type: Spontaneous
  Country: US (occurrence: US)
  Receive Date: 20160613
  Receipt Date: 20160613
  Transmission Date: 20160815
  Serious: No
  Sender: FDA-Public Use
  Company Number: US-AUROBINDO-AUR-APU-2016-01076

PATIENT
  Sex: Female
  Weight: 75 kg

DRUGS (3)
  1. CLONAZEPAM. [Concomitant]
     Active Substance: CLONAZEPAM
     Indication: PRODUCT USED FOR UNKNOWN INDICATION
     Dosage: 0.5 MG, UNK
     Route: 065
  2. OLANZAPINE TABLETS 15MG [Suspect]
     Active Substance: OLANZAPINE
     Indication: EATING DISORDER
  3. OLANZAPINE TABLETS 15MG [Suspect]
     Active Substance: OLANZAPINE
     Indication: ANXIETY
     Dosage: 15 MG, DAILY ONE TABLET
     Route: 065

REACTIONS (4)
  - Product substitution issue [Not Recovered/Not Resolved]
  - Product substitution issue [None]
  - Weight decreased [Not Recovered/Not Resolved]
  - Drug ineffective [Not Recovered/Not Resolved]
